FAERS Safety Report 5541891-0 (Version None)
Quarter: 2007Q4

REPORT INFORMATION
  Report Type: 
  Country: None (occurrence: None)
  Receive Date: 20071205
  Receipt Date: 20071126
  Transmission Date: 20080405
  Serious: Yes (Death)
  Sender: FDA-Public Use
  Company Number: GXKR2007FI10148

PATIENT
  Age: 32 Year
  Sex: Male

DRUGS (2)
  1. FLECAINIDE (NGX)(FLECAINIDE) UNKNOWN [Suspect]
     Indication: ATRIAL FIBRILLATION
     Dosage: 200 MG,
  2. BISOPROLOL FUMARATE [Concomitant]

REACTIONS (10)
  - ATRIOVENTRICULAR BLOCK SECOND DEGREE [None]
  - BLOOD PRESSURE SYSTOLIC DECREASED [None]
  - DEPRESSED LEVEL OF CONSCIOUSNESS [None]
  - DRUG LEVEL ABOVE THERAPEUTIC [None]
  - DRUG TOXICITY [None]
  - DYSPNOEA [None]
  - GENERAL PHYSICAL HEALTH DETERIORATION [None]
  - HEART RATE IRREGULAR [None]
  - NAUSEA [None]
  - PACEMAKER GENERATED RHYTHM [None]
